FAERS Safety Report 8444461-X (Version None)
Quarter: 2012Q2

REPORT INFORMATION
  Report Type: 
  Country: None (occurrence: None)
  Receive Date: 20120618
  Receipt Date: 20120614
  Transmission Date: 20120825
  Serious: Yes (Other)
  Sender: FDA-Public Use
  Company Number: CN-PFIZER INC-2012143105

PATIENT
  Age: 40 Year
  Sex: Male

DRUGS (1)
  1. CYTOSAR-U [Suspect]
     Indication: LEUKAEMIA RECURRENT
     Dosage: 1.5 G/M2

REACTIONS (2)
  - LARYNGEAL OEDEMA [None]
  - OROPHARYNGEAL PAIN [None]
